FAERS Safety Report 9687916 (Version 2)
Quarter: 2013Q4

REPORT INFORMATION
  Report Type: Spontaneous
  Country: US (occurrence: US)
  Receive Date: 20131114
  Receipt Date: 20131226
  Transmission Date: 20140711
  Serious: Yes (Hospitalization, Other)
  Sender: FDA-Public Use
  Company Number: US-BAYER-2013-136983

PATIENT
  Age: 50 Year
  Sex: Female
  Weight: 63.49 kg

DRUGS (5)
  1. YASMIN [Suspect]
     Dosage: UNK
     Route: 048
     Dates: start: 2001, end: 2004
  2. YASMIN [Suspect]
     Dosage: UNK
     Route: 048
     Dates: start: 2006, end: 2006
  3. MULTIVITAMINS [Concomitant]
     Dosage: DAILY
     Dates: start: 20061219
  4. ASPIRIN [Concomitant]
     Dosage: 81 MG, UNK
     Dates: start: 20061219
  5. VITAMIN E [Concomitant]
     Dosage: 400 IU, UNK
     Dates: start: 20061219

REACTIONS (10)
  - Pulmonary embolism [None]
  - Deep vein thrombosis [None]
  - Thrombosis [None]
  - Thrombophlebitis superficial [None]
  - Injury [None]
  - Pain [None]
  - General physical health deterioration [None]
  - Anxiety [None]
  - Emotional distress [None]
  - Pain [None]
